FAERS Safety Report 24241923 (Version 2)
Quarter: 2025Q2

REPORT INFORMATION
  Report Type: Spontaneous
  Country: DE (occurrence: DE)
  Receive Date: 20240823
  Receipt Date: 20250516
  Transmission Date: 20250716
  Serious: Yes (Hospitalization, Other)
  Sender: SANDOZ
  Company Number: None

PATIENT
  Sex: Male
  Weight: 0.98 kg

DRUGS (30)
  1. GRANULOCYTE COLONY-STIMULATING FACTOR NOS [Suspect]
     Active Substance: GRANULOCYTE COLONY-STIMULATING FACTOR NOS
     Indication: Foetal exposure during pregnancy
     Route: 064
  2. RITUXIMAB [Suspect]
     Active Substance: RITUXIMAB
     Indication: Foetal exposure during pregnancy
     Route: 064
  3. RITUXIMAB [Suspect]
     Active Substance: RITUXIMAB
     Indication: Product used for unknown indication
  4. CYCLOPHOSPHAMIDE [Concomitant]
     Active Substance: CYCLOPHOSPHAMIDE
     Indication: Foetal exposure during pregnancy
     Route: 064
  5. CYCLOPHOSPHAMIDE [Concomitant]
     Active Substance: CYCLOPHOSPHAMIDE
     Indication: Product used for unknown indication
     Route: 064
  6. CYTARABINE [Concomitant]
     Active Substance: CYTARABINE
     Indication: Foetal exposure during pregnancy
     Route: 064
  7. CYTARABINE [Concomitant]
     Active Substance: CYTARABINE
     Indication: Product used for unknown indication
  8. DAUNORUBICIN [Concomitant]
     Active Substance: DAUNORUBICIN
     Indication: Foetal exposure during pregnancy
     Route: 064
  9. DAUNORUBICIN [Concomitant]
     Active Substance: DAUNORUBICIN
     Indication: Product used for unknown indication
  10. DEXAMETHASONE [Concomitant]
     Active Substance: DEXAMETHASONE
     Indication: Foetal exposure during pregnancy
     Route: 064
  11. DEXAMETHASONE [Concomitant]
     Active Substance: DEXAMETHASONE
     Indication: Product used for unknown indication
  12. ETOPOSIDE [Concomitant]
     Active Substance: ETOPOSIDE
     Indication: Foetal exposure during pregnancy
     Route: 064
  13. ETOPOSIDE [Concomitant]
     Active Substance: ETOPOSIDE
     Indication: Product used for unknown indication
  14. LEUCOVORIN [Concomitant]
     Active Substance: LEUCOVORIN\LEUCOVORIN CALCIUM
     Indication: Foetal exposure during pregnancy
     Route: 064
  15. LEUCOVORIN [Concomitant]
     Active Substance: LEUCOVORIN\LEUCOVORIN CALCIUM
     Indication: Product used for unknown indication
  16. MERCAPTOPURINE [Concomitant]
     Active Substance: MERCAPTOPURINE
     Indication: Foetal exposure during pregnancy
     Route: 064
  17. MERCAPTOPURINE [Concomitant]
     Active Substance: MERCAPTOPURINE
     Indication: Product used for unknown indication
  18. MESNA [Concomitant]
     Active Substance: MESNA
     Indication: Foetal exposure during pregnancy
     Route: 064
  19. MESNA [Concomitant]
     Active Substance: MESNA
     Indication: Product used for unknown indication
  20. METHOTREXATE [Concomitant]
     Active Substance: METHOTREXATE
     Indication: Product used for unknown indication
     Route: 064
  21. METHOTREXATE [Concomitant]
     Active Substance: METHOTREXATE
     Indication: Foetal exposure during pregnancy
     Route: 064
  22. METHOTREXATE [Concomitant]
     Active Substance: METHOTREXATE
     Route: 064
  23. PEGASPARGASE [Concomitant]
     Active Substance: PEGASPARGASE
     Indication: Foetal exposure during pregnancy
     Route: 064
  24. PEGASPARGASE [Concomitant]
     Active Substance: PEGASPARGASE
     Indication: Product used for unknown indication
  25. SODIUM CHLORIDE [Concomitant]
     Active Substance: SODIUM CHLORIDE
     Indication: Foetal exposure during pregnancy
     Route: 064
  26. SODIUM CHLORIDE [Concomitant]
     Active Substance: SODIUM CHLORIDE
     Indication: Product used for unknown indication
  27. VINCRISTINE [Concomitant]
     Active Substance: VINCRISTINE
     Indication: Foetal exposure during pregnancy
     Route: 064
  28. VINCRISTINE [Concomitant]
     Active Substance: VINCRISTINE
     Indication: Product used for unknown indication
  29. VINDESINE [Concomitant]
     Active Substance: VINDESINE
     Indication: Foetal exposure during pregnancy
     Route: 064
  30. VINDESINE [Concomitant]
     Active Substance: VINDESINE
     Indication: Product used for unknown indication

REACTIONS (3)
  - Foetal growth restriction [Recovered/Resolved]
  - Low birth weight baby [Recovered/Resolved]
  - Foetal exposure during pregnancy [Unknown]
